FAERS Safety Report 13238261 (Version 2)
Quarter: 2017Q1

REPORT INFORMATION
  Report Type: Spontaneous
  Country: JP (occurrence: JP)
  Receive Date: 20170216
  Receipt Date: 20170309
  Transmission Date: 20170428
  Serious: Yes (Other)
  Sender: FDA-Public Use
  Company Number: JP-ROCHE-1893315

PATIENT
  Age: 46 Year
  Sex: Male

DRUGS (2)
  1. LUCENTIS [Suspect]
     Active Substance: RANIBIZUMAB
     Indication: POLYPOIDAL CHOROIDAL VASCULOPATHY
     Dosage: PATIENT RECEIVED LUCENTIS FOR 3 TIMES
     Route: 031
  2. LUCENTIS [Suspect]
     Active Substance: RANIBIZUMAB
     Indication: AGE-RELATED MACULAR DEGENERATION
     Dosage: PATIENT RECEIVED LUCENTIS FOR 3 TIMES
     Route: 031

REACTIONS (3)
  - Fundoscopy abnormal [Unknown]
  - Age-related macular degeneration [Unknown]
  - Disease progression [Unknown]
